FAERS Safety Report 8066389-X (Version None)
Quarter: 2012Q1

REPORT INFORMATION
  Report Type: 
  Country: None (occurrence: None)
  Receive Date: 20120124
  Receipt Date: 20120124
  Transmission Date: 20120608
  Serious: Yes (Hospitalization, Other)
  Sender: FDA-Public Use
  Company Number: None

PATIENT
  Age: 16 Year
  Sex: Female
  Weight: 44.452 kg

DRUGS (2)
  1. DROSPIRENONE AND ETHINYL ESTRADIOL [Suspect]
     Indication: ACNE
     Dates: start: 20110411, end: 20111218
  2. DROSPIRENONE AND ETHINYL ESTRADIOL [Suspect]
     Indication: CONTRACEPTION
     Dates: start: 20110411, end: 20111218

REACTIONS (5)
  - PRODUCT QUALITY ISSUE [None]
  - HEADACHE [None]
  - ANGER [None]
  - DISTURBANCE IN ATTENTION [None]
  - MOOD SWINGS [None]
